FAERS Safety Report 6659094-5 (Version None)
Quarter: 2010Q1

REPORT INFORMATION
  Report Type: 
  Country: None (occurrence: None)
  Receive Date: 20100330
  Receipt Date: 20100318
  Transmission Date: 20100710
  Serious: Yes (Hospitalization)
  Sender: FDA-Public Use
  Company Number: JP-PFIZER INC-2009157844

PATIENT
  Age: 38 Year
  Sex: Male
  Weight: 60 kg

DRUGS (4)
  1. SUNITINIB MALATE [Suspect]
     Indication: RENAL CELL CARCINOMA
     Dosage: 50 MG, 1X/DAY
     Route: 048
     Dates: start: 20081017, end: 20090101
  2. MOBIC [Concomitant]
     Dosage: UNK
     Route: 048
     Dates: start: 20080808
  3. CANDESARTAN CILEXETIL [Concomitant]
     Dosage: UNK
     Route: 048
     Dates: start: 20080808
  4. TAGAMET [Concomitant]
     Dosage: UNK
     Route: 048
     Dates: start: 20080808

REACTIONS (1)
  - RENAL FAILURE ACUTE [None]
